FAERS Safety Report 6149193-9 (Version None)
Quarter: 2009Q2

REPORT INFORMATION
  Report Type: 
  Country: None (occurrence: None)
  Receive Date: 20090406
  Receipt Date: 20090406
  Transmission Date: 20091009
  Serious: Yes (Other)
  Sender: FDA-Public Use
  Company Number: None

PATIENT
  Age: 24 Year
  Sex: Male
  Weight: 79.3795 kg

DRUGS (1)
  1. MUCINEX D [Suspect]
     Dosage: 1 PILL EVERY 12 HOURS PO
     Route: 048
     Dates: start: 20090402, end: 20090404

REACTIONS (1)
  - HYPOAESTHESIA FACIAL [None]
